FAERS Safety Report 18794732 (Version 3)
Quarter: 2021Q1

REPORT INFORMATION
  Report Type: Report from Study
  Country: US (occurrence: US)
  Receive Date: 20210127
  Receipt Date: 20210326
  Transmission Date: 20210419
  Serious: Yes (Other)
  Sender: FDA-Public Use
  Company Number: US-B.I. PHARMACEUTICALS,INC./RIDGEFIELD-2020-BI-007907

PATIENT
  Age: 78 Year
  Sex: Female
  Weight: 47.63 kg

DRUGS (3)
  1. OFEV [Suspect]
     Active Substance: NINTEDANIB
     Dosage: 150 MG 1 CAPSULE TWICE DAILY ALTERNATING  DAYS WITH 150 MG 1 CAPSULE DAILY
     Route: 048
  2. OFEV [Suspect]
     Active Substance: NINTEDANIB
     Indication: IDIOPATHIC PULMONARY FIBROSIS
     Route: 048
     Dates: start: 20200115
  3. OFEV [Suspect]
     Active Substance: NINTEDANIB
     Dosage: 150 MG 1 CAPSULE TWICE DAILY ALTERNATING  DAYS WITH 150 MG 1 CAPSULE DAILY
     Route: 048

REACTIONS (8)
  - Abdominal pain upper [Unknown]
  - Defaecation urgency [Not Recovered/Not Resolved]
  - Oesophageal operation [Unknown]
  - Gastric disorder [Not Recovered/Not Resolved]
  - Abdominal pain [Not Recovered/Not Resolved]
  - Weight decreased [Not Recovered/Not Resolved]
  - Faeces soft [Unknown]
  - Muscle spasms [Not Recovered/Not Resolved]

NARRATIVE: CASE EVENT DATE: 202001
